FAERS Safety Report 6383132-0 (Version None)
Quarter: 2009Q3

REPORT INFORMATION
  Report Type: 
  Country: None (occurrence: None)
  Receive Date: 20090930
  Receipt Date: 20090918
  Transmission Date: 20100115
  Serious: Yes (Hospitalization)
  Sender: FDA-Public Use
  Company Number: CA-GENENTECH-285804

PATIENT
  Sex: Female

DRUGS (7)
  1. TRASTUZUMAB [Suspect]
     Indication: BREAST CANCER
     Dosage: 420 MG, Q3W
     Route: 042
     Dates: start: 20090318
  2. AVASTIN [Suspect]
     Indication: BREAST CANCER
     Dosage: 1050 MG, Q3W
     Route: 042
     Dates: start: 20090318, end: 20090722
  3. DOCETAXEL [Suspect]
     Indication: BREAST CANCER
     Dosage: 129 MG, Q3W
     Route: 042
     Dates: start: 20090318, end: 20090722
  4. CARBOPLATIN [Suspect]
     Indication: BREAST CANCER
     Dosage: 840 MG, Q3W
     Route: 042
     Dates: start: 20090318, end: 20090722
  5. NORVASC [Concomitant]
     Indication: DRUG USE FOR UNKNOWN INDICATION
     Dosage: UNK
     Dates: start: 20090419
  6. HYDROCHLOROTHIAZIDE [Concomitant]
     Indication: DRUG USE FOR UNKNOWN INDICATION
     Dosage: UNK
     Dates: start: 20090419
  7. PANTOPRAZOLE [Concomitant]
     Indication: DRUG USE FOR UNKNOWN INDICATION
     Dosage: UNK
     Dates: start: 20090428

REACTIONS (2)
  - ENCEPHALOPATHY [None]
  - FEBRILE NEUTROPENIA [None]
